FAERS Safety Report 17748650 (Version 1)
Quarter: 2020Q2

REPORT INFORMATION
  Report Type: Spontaneous
  Country: US (occurrence: US)
  Receive Date: 20200505
  Receipt Date: 20200505
  Transmission Date: 20200714
  Serious: No
  Sender: FDA-Public Use
  Company Number: US-ROCHE-2465641

PATIENT
  Age: 76 Year
  Sex: Male
  Weight: 71.73 kg

DRUGS (11)
  1. ESBRIET [Suspect]
     Active Substance: PIRFENIDONE
     Dosage: 3 PILLS, 3 TIMES A DAY WITH MEALS
     Route: 048
     Dates: start: 2018, end: 20190915
  2. ESBRIET [Suspect]
     Active Substance: PIRFENIDONE
     Dosage: 2 PILLS, 3 TIMES A DAY WITH MEALS
     Route: 048
     Dates: start: 20191205
  3. EPIPEN [Suspect]
     Active Substance: EPINEPHRINE
     Indication: DIABETES MELLITUS
     Route: 065
  4. ESBRIET [Suspect]
     Active Substance: PIRFENIDONE
     Dosage: 3 PILLS, 3 TIMES A DAY
     Route: 048
     Dates: start: 20180208
  5. ESBRIET [Suspect]
     Active Substance: PIRFENIDONE
     Route: 048
     Dates: start: 2017
  6. ESBRIET [Suspect]
     Active Substance: PIRFENIDONE
     Dosage: 3 PILLS, 3 TIMES A DAY
     Route: 048
     Dates: start: 2017, end: 2018
  7. ESBRIET [Suspect]
     Active Substance: PIRFENIDONE
     Dosage: 3 PILLS, 3 TIMES A DAY
     Route: 048
     Dates: start: 20180306, end: 2018
  8. ESBRIET [Suspect]
     Active Substance: PIRFENIDONE
     Indication: IDIOPATHIC PULMONARY FIBROSIS
     Dosage: 3 PILLS, 3 TIMES A DAY
     Route: 048
     Dates: start: 201801
  9. ESBRIET [Suspect]
     Active Substance: PIRFENIDONE
     Dosage: 1 PILL, 3 TIMES A DAY WITH MEALS
     Route: 048
     Dates: start: 20190929, end: 20191013
  10. BYDUREON [Concomitant]
     Active Substance: EXENATIDE
     Route: 065
     Dates: end: 201911
  11. METFORMIN [Concomitant]
     Active Substance: METFORMIN HYDROCHLORIDE
     Route: 065

REACTIONS (9)
  - Rash [Recovered/Resolved]
  - Weight decreased [Not Recovered/Not Resolved]
  - Diarrhoea [Not Recovered/Not Resolved]
  - Gastric disorder [Recovered/Resolved]
  - Asthenia [Unknown]
  - Malaise [Recovered/Resolved]
  - Vomiting [Recovered/Resolved]
  - Retching [Unknown]
  - Gastroenteritis viral [Recovered/Resolved]

NARRATIVE: CASE EVENT DATE: 201806
